FAERS Safety Report 4317525-X (Version None)
Quarter: 2004Q1

REPORT INFORMATION
  Report Type: 
  Country: None (occurrence: None)
  Receive Date: 20040312
  Receipt Date: 20040225
  Transmission Date: 20041129
  Serious: Yes (Death, Life-Threatening, Hospitalization, Disabling, Other)
  Sender: FDA-Public Use
  Company Number: TOS-000610

PATIENT
  Age: 70 Year
  Sex: Female
  Weight: 69.8 kg

DRUGS (7)
  1. TOSITUMOMAB, IODINE 1131 TOSITUMOMAB [Suspect]
     Dosage: SEE IMAGE
     Route: 042
     Dates: start: 20000921, end: 20000921
  2. TOSITUMOMAB, IODINE 1131 TOSITUMOMAB [Suspect]
     Dosage: SEE IMAGE
     Route: 042
     Dates: start: 20000921, end: 20000921
  3. TOSITUMOMAB, IODINE 1131 TOSITUMOMAB [Suspect]
     Dosage: SEE IMAGE
     Route: 042
     Dates: start: 20000928, end: 20000928
  4. TOSITUMOMAB, IODINE 1131 TOSITUMOMAB [Suspect]
     Dosage: SEE IMAGE
     Route: 042
     Dates: start: 20000928, end: 20000928
  5. TOSITUMOMAB, IODINE 1131 TOSITUMOMAB [Suspect]
  6. TOSITUMOMAB, IODINE 1131 TOSITUMOMAB [Suspect]
  7. TOSITUMOMAB, IODINE 1131 TOSITUMOMAB [Suspect]

REACTIONS (25)
  - ACUTE MYELOID LEUKAEMIA [None]
  - ATAXIA [None]
  - CEREBRAL INFARCTION [None]
  - DIZZINESS [None]
  - ELECTROCARDIOGRAM QT PROLONGED [None]
  - FACE OEDEMA [None]
  - FAECAL OCCULT BLOOD POSITIVE [None]
  - FALL [None]
  - HAEMOGLOBIN DECREASED [None]
  - HEPATIC LESION [None]
  - LOSS OF CONSCIOUSNESS [None]
  - LUNG NEOPLASM [None]
  - LYMPHADENOPATHY [None]
  - MALIGNANT NEOPLASM PROGRESSION [None]
  - MYELODYSPLASTIC SYNDROME [None]
  - NAUSEA [None]
  - NEUTROPHIL COUNT DECREASED [None]
  - NON-HODGKIN'S LYMPHOMA [None]
  - PLATELET COUNT DECREASED [None]
  - POSITRON EMISSION TOMOGRAM ABNORMAL [None]
  - SPLENIC LESION [None]
  - SPLENOMEGALY [None]
  - STAPHYLOCOCCAL BACTERAEMIA [None]
  - VOMITING [None]
  - WHITE BLOOD CELL COUNT DECREASED [None]
